FAERS Safety Report 22232449 (Version 1)
Quarter: 2023Q2

REPORT INFORMATION
  Report Type: Spontaneous
  Country: US (occurrence: None)
  Receive Date: 20230420
  Receipt Date: 20230420
  Transmission Date: 20230721
  Serious: No
  Sender: FDA-Public Use
  Company Number: US-ROCHE-3088051

PATIENT
  Sex: Male

DRUGS (8)
  1. ESBRIET [Suspect]
     Active Substance: PIRFENIDONE
     Indication: Pulmonary fibrosis
     Dosage: TAKE 1 TABLET 3 TIMES DAILY FOR A WEEK, THEN 2 TABLETS 3 TIMES DAILY FOR ANOTHER WEEK AND THEN WITH
     Route: 048
     Dates: start: 20220329
  2. CEPHALEXIN [Concomitant]
     Active Substance: CEPHALEXIN
  3. METOPROLOL TARTRATE [Concomitant]
     Active Substance: METOPROLOL TARTRATE
  4. XARELTO [Concomitant]
     Active Substance: RIVAROXABAN
  5. BENZONATATE [Concomitant]
     Active Substance: BENZONATATE
  6. MELATONIN [Concomitant]
     Active Substance: MELATONIN
  7. MUCINEX [Concomitant]
     Active Substance: GUAIFENESIN
     Dosage: 30-600 MG
  8. PROMETHAZINE [Concomitant]
     Active Substance: PROMETHAZINE HYDROCHLORIDE
     Dosage: 6.25-10M

REACTIONS (2)
  - Heart rate increased [Not Recovered/Not Resolved]
  - Dyspnoea [Not Recovered/Not Resolved]
